FAERS Safety Report 6874306-0 (Version None)
Quarter: 2010Q3

REPORT INFORMATION
  Report Type: 
  Country: None (occurrence: None)
  Receive Date: 20100723
  Receipt Date: 20090624
  Transmission Date: 20110219
  Serious: No
  Sender: FDA-Public Use
  Company Number: US-PFIZER INC-2009210262

PATIENT
  Sex: Female
  Weight: 68.038 kg

DRUGS (2)
  1. CHANTIX [Suspect]
     Route: 048
     Dates: start: 20090430
  2. CLINDAMYCIN [Concomitant]
     Indication: ORAL INFECTION

REACTIONS (8)
  - ANORECTAL DISCOMFORT [None]
  - DRY SKIN [None]
  - ERYTHEMA [None]
  - FLATULENCE [None]
  - PRURITUS [None]
  - SKIN BURNING SENSATION [None]
  - TACHYCARDIA [None]
  - VULVOVAGINAL BURNING SENSATION [None]
